FAERS Safety Report 20074949 (Version 1)
Quarter: 2021Q4

REPORT INFORMATION
  Report Type: Other
  Country: US (occurrence: None)
  Receive Date: 20211116
  Receipt Date: 20211116
  Transmission Date: 20220303
  Serious: Yes (Other)
  Sender: FDA-Public Use
  Company Number: US-ROCHE-2950759

PATIENT
  Sex: Male
  Weight: 93.070 kg

DRUGS (2)
  1. OCREVUS [Suspect]
     Active Substance: OCRELIZUMAB
     Indication: Multiple sclerosis
     Dosage: YES
     Route: 065
  2. MIRTAZAPINE [Concomitant]
     Active Substance: MIRTAZAPINE
     Indication: Depression
     Route: 048

REACTIONS (9)
  - Multiple sclerosis relapse [Recovered/Resolved]
  - COVID-19 pneumonia [Recovering/Resolving]
  - Lethargy [Not Recovered/Not Resolved]
  - Weight increased [Unknown]
  - Gait disturbance [Not Recovered/Not Resolved]
  - Depression [Unknown]
  - Dysphemia [Unknown]
  - Somnolence [Unknown]
  - Feeling abnormal [Not Recovered/Not Resolved]

NARRATIVE: CASE EVENT DATE: 20210101
